FAERS Safety Report 6954682-0 (Version None)
Quarter: 2010Q3

REPORT INFORMATION
  Report Type: 
  Country: None (occurrence: None)
  Receive Date: 20100829
  Receipt Date: 20100726
  Transmission Date: 20110219
  Serious: No
  Sender: FDA-Public Use
  Company Number: US-ABBOTT-10P-163-0659899-00

PATIENT
  Sex: Female
  Weight: 83.99 kg

DRUGS (12)
  1. NIASPAN [Suspect]
     Indication: BLOOD CHOLESTEROL INCREASED
     Dates: start: 20100601, end: 20100701
  2. NIASPAN [Suspect]
     Dates: start: 20100701
  3. TOPROL-XL [Concomitant]
     Indication: BLOOD PRESSURE
  4. SPIRONOLACTONE [Concomitant]
     Indication: BLOOD PRESSURE
  5. ALLOPURINOL [Concomitant]
     Indication: GOUT
     Dosage: 2- 50 MG DAILY
  6. HYDROCHLOROTHIAZIDE [Concomitant]
     Indication: BLOOD PRESSURE
  7. METFORMIN [Concomitant]
     Indication: DIABETES MELLITUS
  8. DILTIAZEM HCL [Concomitant]
     Indication: BLOOD PRESSURE
  9. LEVOXYL [Concomitant]
     Indication: THYROID DISORDER
  10. TETRACYCLINE [Concomitant]
     Indication: PROPHYLAXIS
  11. MAG OXIDE [Concomitant]
     Indication: BLOOD MAGNESIUM DECREASED
  12. ASPIRIN [Concomitant]
     Indication: PRODUCT USED FOR UNKNOWN INDICATION

REACTIONS (2)
  - PRURITUS [None]
  - RASH [None]
